FAERS Safety Report 7910664-3 (Version None)
Quarter: 2011Q4

REPORT INFORMATION
  Report Type: 
  Country: None (occurrence: None)
  Receive Date: 20111111
  Receipt Date: 20111102
  Transmission Date: 20120403
  Serious: Yes (Other)
  Sender: FDA-Public Use
  Company Number: GB-ASTRAZENECA-2011SE66166

PATIENT
  Age: 53 Year
  Sex: Female
  Weight: 65 kg

DRUGS (7)
  1. INDAPAMIDE [Concomitant]
  2. MOMETASONE FUROATE [Concomitant]
     Route: 045
  3. FELODIPINE [Suspect]
     Indication: HYPERTENSION
     Route: 048
     Dates: start: 20090709, end: 20090718
  4. ATENOLOL [Concomitant]
  5. CANDESARTAN CILEXETIL [Concomitant]
  6. DIPROBASE [Concomitant]
  7. ASACOL MR [Concomitant]

REACTIONS (2)
  - SWELLING FACE [None]
  - PSORIASIS [None]
